FAERS Safety Report 5269066-3 (Version None)
Quarter: 2007Q1

REPORT INFORMATION
  Report Type: 
  Country: None (occurrence: None)
  Receive Date: 20070319
  Receipt Date: 20070309
  Transmission Date: 20070707
  Serious: Yes (Life-Threatening)
  Sender: FDA-Public Use
  Company Number: IT-ROCHE-486444

PATIENT
  Age: 75 Year
  Sex: Male

DRUGS (1)
  1. ROCEPHIN [Suspect]
     Indication: PROPHYLAXIS
     Dosage: DOSAGE FORM REPORTED AS VIAL.
     Route: 030
     Dates: start: 20070228, end: 20070228

REACTIONS (2)
  - OEDEMA [None]
  - URTICARIA [None]
